FAERS Safety Report 19772597 (Version 1)
Quarter: 2021Q3

REPORT INFORMATION
  Report Type: Spontaneous
  Country: US (occurrence: US)
  Receive Date: 20210827
  Receipt Date: 20210827
  Transmission Date: 20211014
  Serious: No
  Sender: FDA-Public Use
  Company Number: None

PATIENT
  Sex: Male

DRUGS (2)
  1. TEMOZOLOMIDE 140MG AMNEAL PHARMACEUTICALS [Suspect]
     Active Substance: TEMOZOLOMIDE
     Route: 048
     Dates: start: 202105
  2. TEMOZOLOMIDE 5MG AMNEAL PHARMACEUTICALS [Suspect]
     Active Substance: TEMOZOLOMIDE
     Indication: BRAIN NEOPLASM MALIGNANT
     Route: 048
     Dates: start: 202105

REACTIONS (5)
  - Seizure [None]
  - Thrombosis [None]
  - Oesophageal spasm [None]
  - Oesophageal food impaction [None]
  - Pulmonary thrombosis [None]
